FAERS Safety Report 10080427 (Version 2)
Quarter: 2014Q2

REPORT INFORMATION
  Report Type: Spontaneous
  Country: JP (occurrence: JP)
  Receive Date: 20140416
  Receipt Date: 20140427
  Transmission Date: 20141212
  Serious: No
  Sender: FDA-Public Use
  Company Number: JP-ROCHE-1380739

PATIENT
  Age: 61 Year
  Sex: Male

DRUGS (3)
  1. XELODA [Suspect]
     Indication: GASTRIC CANCER
     Dosage: DOSAGE IS UNCERTAIN.
     Route: 048
  2. HERCEPTIN [Suspect]
     Indication: GASTRIC CANCER
     Dosage: DOSAGE IS UNCERTAIN.
     Route: 041
  3. CISPLATIN [Concomitant]
     Indication: GASTRIC CANCER
     Dosage: DOSAGE IS UNCERTAIN.
     Route: 041

REACTIONS (2)
  - Oral disorder [Unknown]
  - Palmar-plantar erythrodysaesthesia syndrome [Unknown]
